FAERS Safety Report 12280608 (Version 1)
Quarter: 2016Q2

REPORT INFORMATION
  Report Type: Spontaneous
  Country: US (occurrence: US)
  Receive Date: 20160419
  Receipt Date: 20160419
  Transmission Date: 20160815
  Serious: Yes (Other)
  Sender: FDA-Public Use
  Company Number: US-ZYDUS-010642

PATIENT
  Age: 54 Year
  Sex: Female

DRUGS (1)
  1. HYDROXYCHLOROQUINE [Suspect]
     Active Substance: HYDROXYCHLOROQUINE
     Indication: SYSTEMIC LUPUS ERYTHEMATOSUS
     Dosage: 6.0 MG/KG ACTUAL BODY WEIGHT (8.0 MG/KG IDEAL BODY WEIGHT)
     Route: 065

REACTIONS (3)
  - Toxicity to various agents [Unknown]
  - Visual field defect [Unknown]
  - Cystoid macular oedema [Recovered/Resolved]
